FAERS Safety Report 23796297 (Version 1)
Quarter: 2024Q2

REPORT INFORMATION
  Report Type: Spontaneous
  Country: US (occurrence: US)
  Receive Date: 20240430
  Receipt Date: 20240430
  Transmission Date: 20240715
  Serious: Yes (Hospitalization, Other)
  Sender: FDA-Public Use
  Company Number: US-AUROBINDO-AUR-APL-2024-020211

PATIENT
  Age: 49 Year
  Sex: Female

DRUGS (2)
  1. PANTOPRAZOLE [Suspect]
     Active Substance: PANTOPRAZOLE
     Indication: Symptomatic treatment
     Dosage: UNK
     Route: 065
  2. SUCRALFATE [Suspect]
     Active Substance: SUCRALFATE
     Indication: Symptomatic treatment
     Dosage: UNK
     Route: 065

REACTIONS (9)
  - Vitamin B1 deficiency [Recovering/Resolving]
  - Headache [Recovering/Resolving]
  - Paraesthesia [Recovering/Resolving]
  - Hypoaesthesia [Recovering/Resolving]
  - Vision blurred [Unknown]
  - Gait disturbance [Recovering/Resolving]
  - Nystagmus [Recovering/Resolving]
  - Weight decreased [Recovering/Resolving]
  - Wernicke^s encephalopathy [Recovering/Resolving]
